FAERS Safety Report 5955288-2 (Version None)
Quarter: 2008Q4

REPORT INFORMATION
  Report Type: 
  Country: None (occurrence: None)
  Receive Date: 20081117
  Receipt Date: 20081111
  Transmission Date: 20090506
  Serious: Yes (Hospitalization)
  Sender: FDA-Public Use
  Company Number: US-GENENTECH-269794

PATIENT
  Sex: Male
  Weight: 75.283 kg

DRUGS (33)
  1. BEVACIZUMAB [Suspect]
     Indication: NON-SMALL CELL LUNG CANCER
     Dosage: 10 MG/KG, DAYS 1+15
     Dates: start: 20080801, end: 20080912
  2. ALIMTA [Suspect]
     Indication: NON-SMALL CELL LUNG CANCER
     Dosage: 500 MG/M2, DAYS 1+15
     Dates: start: 20080801
  3. GEMZAR [Suspect]
     Indication: NON-SMALL CELL LUNG CANCER
     Dosage: 1500 MG/M2, DAYS 1+15
  4. FOLIC ACID [Concomitant]
     Indication: DRUG USE FOR UNKNOWN INDICATION
     Dosage: 1000 A?G, QD
     Route: 048
  5. VITAMIN B-12 [Concomitant]
     Indication: DRUG USE FOR UNKNOWN INDICATION
     Dosage: 1000 A?G, UNK
     Route: 030
  6. DORIPENEM [Concomitant]
     Indication: DRUG USE FOR UNKNOWN INDICATION
  7. VANCOMYCIN [Concomitant]
     Indication: DRUG USE FOR UNKNOWN INDICATION
  8. CLEOCIN [Concomitant]
     Indication: DRUG USE FOR UNKNOWN INDICATION
  9. TYLENOL (CAPLET) [Concomitant]
     Indication: DRUG USE FOR UNKNOWN INDICATION
  10. ALBUTEROL [Concomitant]
  11. BISACODYL [Concomitant]
     Indication: DRUG USE FOR UNKNOWN INDICATION
  12. CALCIUM CARBONATE [Concomitant]
     Indication: DRUG USE FOR UNKNOWN INDICATION
  13. DIPHENHYDRAMINE HCL [Concomitant]
     Indication: DRUG USE FOR UNKNOWN INDICATION
  14. ACETAMINOPHEN AND HYDROCODONE BITARTRATE [Concomitant]
     Indication: DRUG USE FOR UNKNOWN INDICATION
  15. IPRATROPIUM BROMIDE [Concomitant]
     Indication: DRUG USE FOR UNKNOWN INDICATION
  16. LATANOPROST [Concomitant]
     Indication: DRUG USE FOR UNKNOWN INDICATION
  17. MAGNESIUM HYDROXIDE TAB [Concomitant]
     Indication: DRUG USE FOR UNKNOWN INDICATION
  18. MORPHINE [Concomitant]
     Indication: DRUG USE FOR UNKNOWN INDICATION
  19. NICOTINE [Concomitant]
     Indication: DRUG USE FOR UNKNOWN INDICATION
  20. ZOFRAN [Concomitant]
     Indication: DRUG USE FOR UNKNOWN INDICATION
  21. OXYBUTYNIN [Concomitant]
     Indication: DRUG USE FOR UNKNOWN INDICATION
  22. PROMETHAZINE [Concomitant]
     Indication: DRUG USE FOR UNKNOWN INDICATION
  23. SENNOSIDES [Concomitant]
     Indication: DRUG USE FOR UNKNOWN INDICATION
  24. TIMOLOL MALEATE OPHTHALMIC SOLUTION [Concomitant]
     Indication: DRUG USE FOR UNKNOWN INDICATION
  25. ZYVOX [Concomitant]
     Indication: DRUG USE FOR UNKNOWN INDICATION
  26. DIFLUCAN [Concomitant]
     Indication: DRUG USE FOR UNKNOWN INDICATION
  27. XANAX [Concomitant]
     Indication: DRUG USE FOR UNKNOWN INDICATION
  28. NICODERM [Concomitant]
     Indication: DRUG USE FOR UNKNOWN INDICATION
  29. OS-CAL [Concomitant]
     Indication: DRUG USE FOR UNKNOWN INDICATION
  30. OXYTROL [Concomitant]
     Indication: DRUG USE FOR UNKNOWN INDICATION
  31. BRIMONIDINE TARTRATE [Concomitant]
     Indication: DRUG USE FOR UNKNOWN INDICATION
  32. JUVEN [Concomitant]
     Indication: DRUG USE FOR UNKNOWN INDICATION
  33. INTRALIPID 10% [Concomitant]
     Indication: DRUG USE FOR UNKNOWN INDICATION

REACTIONS (2)
  - NECROTISING FASCIITIS [None]
  - PROCTALGIA [None]
